FAERS Safety Report 15838311 (Version 1)
Quarter: 2019Q1

REPORT INFORMATION
  Report Type: Spontaneous
  Country: CN (occurrence: CN)
  Receive Date: 20190117
  Receipt Date: 20190117
  Transmission Date: 20190417
  Serious: Yes (Life-Threatening, Hospitalization, Other)
  Sender: FDA-Public Use
  Company Number: CN-NOVOPROD-641851

PATIENT
  Age: 71 Year
  Sex: Male
  Weight: 67 kg

DRUGS (2)
  1. NOVORAPID [Suspect]
     Active Substance: INSULIN ASPART
     Indication: DIABETES MELLITUS
     Dosage: 14 U, TID
     Route: 058
     Dates: start: 20180531
  2. NOVORAPID [Suspect]
     Active Substance: INSULIN ASPART
     Dosage: 14 U, TID
     Route: 058
     Dates: end: 20181113

REACTIONS (2)
  - Hyperhidrosis [Recovered/Resolved]
  - Hypoglycaemic coma [Recovered/Resolved]

NARRATIVE: CASE EVENT DATE: 20181113
